FAERS Safety Report 23018126 (Version 1)
Quarter: 2023Q4

REPORT INFORMATION
  Report Type: Report from Study
  Country: BE (occurrence: BE)
  Receive Date: 20231003
  Receipt Date: 20231003
  Transmission Date: 20240110
  Serious: Yes (Hospitalization, Other)
  Sender: FDA-Public Use
  Company Number: BE-ABBVIE-5430382

PATIENT
  Age: 71 Year
  Sex: Male

DRUGS (6)
  1. CARBIDOPA\LEVODOPA [Suspect]
     Active Substance: CARBIDOPA\LEVODOPA
     Indication: Parkinson^s disease
     Dosage: MD: 3.5 ML, CD: 2.5 ML/H, ED: 2.0 ML DURING 16 HOURS^
     Dates: start: 20230418
  2. CARBIDOPA\LEVODOPA [Suspect]
     Active Substance: CARBIDOPA\LEVODOPA
     Dosage: MD: 3.5 ML, CD: 2.4 ML/H, ED: 2.0 ML DURING 16 HOURS
     Route: 050
     Dates: start: 20230111, end: 20230228
  3. CARBIDOPA\LEVODOPA [Suspect]
     Active Substance: CARBIDOPA\LEVODOPA
     Dosage: MD: 3.5 ML, CD: 2.6 ML/H, ED: 2.0 ML DURING 16 HOURS
     Route: 050
     Dates: start: 20170612
  4. CARBIDOPA\LEVODOPA [Suspect]
     Active Substance: CARBIDOPA\LEVODOPA
     Dosage: MD: 3.5 ML, CD: 2.5 ML/H, ED: 2.0 ML DURING 16 HOURS
     Route: 050
     Dates: start: 20230228, end: 20230418
  5. AMLODIPINE BESYLATE [Concomitant]
     Active Substance: AMLODIPINE BESYLATE
     Indication: Hypertension
  6. VALPROATE SODIUM [Concomitant]
     Active Substance: VALPROATE SODIUM
     Indication: Epilepsy

REACTIONS (10)
  - Malaise [Unknown]
  - Bradykinesia [Unknown]
  - Epilepsy [Unknown]
  - Muscle spasms [Unknown]
  - Hypertension [Unknown]
  - End stage renal disease [Unknown]
  - Dyskinesia [Unknown]
  - Terminal state [Unknown]
  - Somnolence [Unknown]
  - Unevaluable event [Unknown]

NARRATIVE: CASE EVENT DATE: 20230901
